FAERS Safety Report 6788640-6 (Version None)
Quarter: 2010Q2

REPORT INFORMATION
  Report Type: 
  Country: None (occurrence: None)
  Receive Date: 20100623
  Receipt Date: 20080501
  Transmission Date: 20101027
  Serious: No
  Sender: FDA-Public Use
  Company Number: US-PFIZER INC-2008037406

PATIENT
  Sex: Female

DRUGS (6)
  1. GEODON [Suspect]
  2. VISTARIL [Concomitant]
  3. LEXAPRO [Concomitant]
  4. ATIVAN [Concomitant]
  5. MELLARIL [Concomitant]
  6. TRILEPTAL [Concomitant]

REACTIONS (3)
  - DRUG INEFFECTIVE [None]
  - INCORRECT DOSE ADMINISTERED [None]
  - NO ADVERSE EVENT [None]
